FAERS Safety Report 8301822 (Version 4)
Quarter: 2014Q3

REPORT INFORMATION
  Report Type: Spontaneous
  Country: US (occurrence: US)
  Receive Date: 20111220
  Receipt Date: 20140724
  Transmission Date: 20150326
  Serious: Yes (Hospitalization)
  Sender: FDA-Public Use
  Company Number: US-GLAXOSMITHKLINE-A0898887A

PATIENT
  Sex: Female

DRUGS (8)
  1. MAGNESIUM [Concomitant]
     Active Substance: MAGNESIUM
  2. IMDUR [Concomitant]
     Active Substance: ISOSORBIDE MONONITRATE
  3. VITAMINS [Concomitant]
     Active Substance: VITAMINS
  4. PROPAFENONE HYDROCHLORIDE. [Suspect]
     Active Substance: PROPAFENONE HYDROCHLORIDE
     Indication: ATRIAL FIBRILLATION
  5. CARDIZEM [Concomitant]
     Active Substance: DILTIAZEM HYDROCHLORIDE
  6. ASPIRIN. [Concomitant]
     Active Substance: ASPIRIN
  7. RYTHMOL [Suspect]
     Active Substance: PROPAFENONE HYDROCHLORIDE
     Indication: ARRHYTHMIA
     Dosage: 150MG UNKNOWN
     Route: 065
     Dates: start: 1994
  8. PLAVIX [Concomitant]
     Active Substance: CLOPIDOGREL BISULFATE

REACTIONS (9)
  - Arrhythmia [Unknown]
  - Muscle strain [Unknown]
  - Product quality issue [Unknown]
  - Drug ineffective [Unknown]
  - Overdose [Unknown]
  - Dyspnoea [Unknown]
  - Abasia [Unknown]
  - Performance status decreased [Unknown]
  - Atrial fibrillation [Unknown]
